FAERS Safety Report 9361622 (Version 2)
Quarter: 2015Q1

REPORT INFORMATION
  Report Type: Spontaneous
  Country: US (occurrence: US)
  Receive Date: 20130621
  Receipt Date: 20150211
  Transmission Date: 20150721
  Serious: Yes (Hospitalization, Other)
  Sender: FDA-Public Use
  Company Number: US-GILEAD-2013-0077406

PATIENT
  Age: 59 Year
  Sex: Male

DRUGS (2)
  1. LETAIRIS [Suspect]
     Active Substance: AMBRISENTAN
     Indication: PRODUCT USED FOR UNKNOWN INDICATION
     Dosage: 5 MG, QD
     Route: 048
     Dates: start: 20090921
  2. ADCIRCA [Concomitant]
     Active Substance: TADALAFIL

REACTIONS (16)
  - Chronic obstructive pulmonary disease [Unknown]
  - Cough [Unknown]
  - Choking [Unknown]
  - Weight decreased [Unknown]
  - Pulmonary arterial hypertension [Unknown]
  - Painful respiration [Unknown]
  - Dyspnoea [Unknown]
  - Pneumonia [Unknown]
  - Pulmonary haemorrhage [Unknown]
  - Cardiac failure congestive [Unknown]
  - Blindness [Unknown]
  - Vomiting [Unknown]
  - Loss of consciousness [Unknown]
  - Sneezing [Unknown]
  - Fall [Unknown]
  - Hypersensitivity [Unknown]
